FAERS Safety Report 7005113-6 (Version None)
Quarter: 2010Q3

REPORT INFORMATION
  Report Type: 
  Country: None (occurrence: None)
  Receive Date: 20100921
  Receipt Date: 20100910
  Transmission Date: 20110219
  Serious: Yes (Other)
  Sender: FDA-Public Use
  Company Number: JP-JNJFOC-20100901245

PATIENT
  Age: 74 Year
  Sex: Male

DRUGS (3)
  1. CRAVIT [Suspect]
     Indication: RESPIRATORY DISORDER
     Route: 048
  2. PIOGLITAZONE HCL [Concomitant]
     Indication: DIABETES MELLITUS
     Route: 065
  3. INSULIN ASPART [Concomitant]
     Indication: DIABETES MELLITUS
     Route: 065

REACTIONS (1)
  - HYPOGLYCAEMIC UNCONSCIOUSNESS [None]
